FAERS Safety Report 16043804 (Version 1)
Quarter: 2019Q1

REPORT INFORMATION
  Report Type: Spontaneous
  Country: US (occurrence: US)
  Receive Date: 20190306
  Receipt Date: 20190306
  Transmission Date: 20190418
  Serious: Yes (Hospitalization)
  Sender: FDA-Public Use
  Company Number: US-PFIZER INC-2018376825

PATIENT
  Age: 69 Year
  Sex: Male
  Weight: 86.18 kg

DRUGS (1)
  1. PREPARATION H MEDICATED WIPES [Suspect]
     Active Substance: WITCH HAZEL
     Indication: HAEMORRHOIDS
     Dosage: ONE WIPE THE FIRST DAY, MAYBE TWICE THE SECOND DAY, AND MAYBE ONCE THE THIRD DAY

REACTIONS (9)
  - Application site pain [Unknown]
  - Wound secretion [Unknown]
  - Product complaint [Unknown]
  - Poor quality product administered [Unknown]
  - Feeling abnormal [Unknown]
  - Wound [Unknown]
  - Wound haemorrhage [Unknown]
  - Pain [Unknown]
  - Headache [Unknown]

NARRATIVE: CASE EVENT DATE: 2018
